FAERS Safety Report 5699965-X (Version None)
Quarter: 2008Q2

REPORT INFORMATION
  Report Type: 
  Country: None (occurrence: None)
  Receive Date: 20080410
  Receipt Date: 20080403
  Transmission Date: 20081010
  Serious: Yes (Other)
  Sender: FDA-Public Use
  Company Number: AU-AVENTIS-200810864GDDC

PATIENT
  Age: 75 Year
  Sex: Male

DRUGS (7)
  1. LANTUS [Suspect]
     Route: 058
     Dates: start: 20070101
  2. AUTOPEN INSULIN INJECTION PEN [Suspect]
     Route: 058
  3. ASPIRIN [Concomitant]
     Route: 048
     Dates: start: 20020402
  4. ASPIRIN [Concomitant]
     Route: 048
     Dates: start: 20020402
  5. PERINDOPRIL [Concomitant]
     Route: 048
     Dates: start: 20020402
  6. ATORVASTATIN [Concomitant]
     Route: 048
     Dates: start: 20061101
  7. METFORMIN HCL [Concomitant]
     Route: 048
     Dates: start: 20020307

REACTIONS (1)
  - CATARACT [None]
